FAERS Safety Report 12311523 (Version 2)
Quarter: 2016Q3

REPORT INFORMATION
  Report Type: Spontaneous
  Country: JP (occurrence: JP)
  Receive Date: 20160427
  Receipt Date: 20160923
  Transmission Date: 20161109
  Serious: Yes (Other)
  Sender: FDA-Public Use
  Company Number: JP-ELI_LILLY_AND_COMPANY-JP201604008361

PATIENT
  Age: 74 Year
  Sex: Male

DRUGS (1)
  1. ERBITUX [Suspect]
     Active Substance: CETUXIMAB
     Indication: SQUAMOUS CELL CARCINOMA OF HEAD AND NECK
     Dosage: UNK UNK, UNKNOWN
     Route: 042
     Dates: start: 20150901, end: 20151022

REACTIONS (22)
  - Hyponatraemia [Recovered/Resolved]
  - Urinary tract infection [Recovering/Resolving]
  - Decreased appetite [Recovered/Resolved]
  - Dermatitis acneiform [Recovering/Resolving]
  - Pharyngeal inflammation [Recovering/Resolving]
  - Epididymitis [Recovering/Resolving]
  - Anaemia [Not Recovered/Not Resolved]
  - Malaise [Recovering/Resolving]
  - Constipation [Recovered/Resolved]
  - Dry mouth [Not Recovered/Not Resolved]
  - Laryngeal inflammation [Recovering/Resolving]
  - Cheilitis [Recovering/Resolving]
  - Dysphagia [Unknown]
  - Dry skin [Recovering/Resolving]
  - Vomiting [Recovered/Resolved]
  - Hyperkalaemia [Recovered/Resolved]
  - Paronychia [Recovered/Resolved]
  - Stomatitis [Recovering/Resolving]
  - Dysphonia [Recovering/Resolving]
  - Dysgeusia [Recovering/Resolving]
  - Radiation skin injury [Recovering/Resolving]
  - Nausea [Recovered/Resolved]

NARRATIVE: CASE EVENT DATE: 20150904
